FAERS Safety Report 18743933 (Version 1)
Quarter: 2021Q1

REPORT INFORMATION
  Report Type: Spontaneous
  Country: US (occurrence: US)
  Receive Date: 20210114
  Receipt Date: 20210114
  Transmission Date: 20210419
  Serious: No
  Sender: FDA-Public Use
  Company Number: US-B.I. PHARMACEUTICALS,INC./RIDGEFIELD-2021-BI-076370

PATIENT
  Age: 74 Year
  Sex: Male
  Weight: 105.7 kg

DRUGS (6)
  1. OFEV [Suspect]
     Active Substance: NINTEDANIB
  2. REVATIO [Concomitant]
     Active Substance: SILDENAFIL CITRATE
     Indication: PRODUCT USED FOR UNKNOWN INDICATION
     Route: 065
  3. TYVASO [Suspect]
     Active Substance: TREPROSTINIL
     Indication: PULMONARY ARTERIAL HYPERTENSION
     Route: 055
     Dates: start: 20201118
  4. OFEV [Suspect]
     Active Substance: NINTEDANIB
     Indication: PRODUCT USED FOR UNKNOWN INDICATION
     Route: 065
  5. OFEV [Suspect]
     Active Substance: NINTEDANIB
  6. TYVASO [Suspect]
     Active Substance: TREPROSTINIL
     Dosage: DOSE: 60?120 ?G
     Route: 055

REACTIONS (3)
  - Diarrhoea [Unknown]
  - Cough [Unknown]
  - Off label use [Unknown]
